FAERS Safety Report 18446224 (Version 1)
Quarter: 2020Q4

REPORT INFORMATION
  Report Type: Report from Study
  Country: US (occurrence: US)
  Receive Date: 20201030
  Receipt Date: 20201030
  Transmission Date: 20210114
  Serious: Yes (Hospitalization)
  Sender: FDA-Public Use
  Company Number: US-TEVA-344539USA

PATIENT
  Sex: Male

DRUGS (1)
  1. COPAXONE [Suspect]
     Active Substance: GLATIRAMER ACETATE
     Indication: MULTIPLE SCLEROSIS
     Dates: start: 20100813

REACTIONS (4)
  - Renal cyst [Unknown]
  - Depression [Recovering/Resolving]
  - Intestinal obstruction [Recovered/Resolved]
  - Abdominal pain [Unknown]
